FAERS Safety Report 9106012 (Version 1)
Quarter: 2013Q1

REPORT INFORMATION
  Report Type: Spontaneous
  Country: DK (occurrence: IT)
  Receive Date: 20130220
  Receipt Date: 20130220
  Transmission Date: 20140127
  Serious: Yes (Hospitalization)
  Sender: FDA-Public Use
  Company Number: IT-FRI-1000042749

PATIENT
  Age: 36 Year
  Sex: Male

DRUGS (2)
  1. ESCITALOPRAM ORAL SOLUTION [Suspect]
     Dosage: OVERDOSE: CIPRALEX 20 ML TOTAL
     Route: 048
     Dates: start: 20121218, end: 20121218
  2. ALCOHOL [Suspect]
     Dates: start: 20121218, end: 20121218

REACTIONS (3)
  - Pain [Recovering/Resolving]
  - Vomiting [Recovering/Resolving]
  - Overdose [Unknown]
